FAERS Safety Report 5851952-4 (Version None)
Quarter: 2008Q3

REPORT INFORMATION
  Report Type: 
  Country: None (occurrence: None)
  Receive Date: 20080819
  Receipt Date: 20080804
  Transmission Date: 20090109
  Serious: Yes (Death)
  Sender: FDA-Public Use
  Company Number: 2008S1013913

PATIENT
  Age: 62 Year
  Sex: Male

DRUGS (4)
  1. AMITRIPTYLINE HCL [Suspect]
     Indication: POST-TRAUMATIC STRESS DISORDER
     Dosage: 300 MG; DAILY; ORAL
     Route: 048
     Dates: start: 19790101, end: 20080530
  2. COREG [Concomitant]
  3. PLAVIX [Concomitant]
  4. ASPIRIN [Concomitant]

REACTIONS (2)
  - CARDIAC DISORDER [None]
  - MYOCARDIAL INFARCTION [None]
